FAERS Safety Report 11112906 (Version 1)
Quarter: 2015Q2

REPORT INFORMATION
  Report Type: Spontaneous
  Country: US (occurrence: None)
  Receive Date: 20150504
  Receipt Date: 20150504
  Transmission Date: 20150821
  Serious: Yes (Life-Threatening, Hospitalization, Other)
  Sender: FDA-Public Use
  Company Number: 1447590

PATIENT
  Age: 53 Year
  Sex: Female

DRUGS (6)
  1. OXYCONTIN [Concomitant]
     Active Substance: OXYCODONE HYDROCHLORIDE
  2. ALIMTA (PEMETREXED DISODIUM) [Concomitant]
  3. PRILOSEC (OMEPRAZOLE) [Concomitant]
     Active Substance: OMEPRAZOLE MAGNESIUM
  4. FOLIC ACID (FOLIC ACID) [Concomitant]
     Active Substance: FOLIC ACID
  5. CARBOPLATINUM (CARBOPLATIN) [Concomitant]
  6. AVASTIN [Suspect]
     Active Substance: BEVACIZUMAB
     Indication: LUNG NEOPLASM MALIGNANT
     Dosage: FIRST AND ONLY DOSE RECEIVED, UNKNOWN
     Dates: start: 20140128, end: 20140128

REACTIONS (7)
  - Septic shock [None]
  - Hypersensitivity [None]
  - Gastrointestinal perforation [None]
  - Constipation [None]
  - Feeding disorder [None]
  - Pain [None]
  - Diverticulitis [None]

NARRATIVE: CASE EVENT DATE: 20140203
